FAERS Safety Report 20526786 (Version 1)
Quarter: 2022Q1

REPORT INFORMATION
  Report Type: Spontaneous
  Country: IN (occurrence: IN)
  Receive Date: 20220228
  Receipt Date: 20220228
  Transmission Date: 20220423
  Serious: Yes (Other)
  Sender: FDA-Public Use
  Company Number: IN-NOVARTISPH-NVSC2022IN043455

PATIENT
  Age: 12 Year
  Sex: Male

DRUGS (1)
  1. IMATINIB [Suspect]
     Active Substance: IMATINIB
     Indication: Chronic myeloid leukaemia
     Dosage: 400 MG, QD (340 MG/M2/DAY)
     Route: 065

REACTIONS (4)
  - Retroperitoneal fibrosis [Unknown]
  - Skin hypopigmentation [Unknown]
  - Myalgia [Unknown]
  - Vitamin D deficiency [Unknown]
